FAERS Safety Report 10654155 (Version 1)
Quarter: 2014Q4

REPORT INFORMATION
  Report Type: Spontaneous
  Country: US (occurrence: US)
  Receive Date: 20141216
  Receipt Date: 20141216
  Transmission Date: 20150529
  Serious: Yes (Other)
  Sender: FDA-Public Use
  Company Number: US-ELI_LILLY_AND_COMPANY-US201412001559

PATIENT
  Sex: Female

DRUGS (2)
  1. CYMBALTA [Suspect]
     Active Substance: DULOXETINE HYDROCHLORIDE
     Indication: BACK PAIN
     Dosage: UNK
     Route: 065
     Dates: start: 2012
  2. CYMBALTA [Suspect]
     Active Substance: DULOXETINE HYDROCHLORIDE
     Indication: FIBROMYALGIA

REACTIONS (8)
  - Dyspnoea [Unknown]
  - Paraesthesia [Unknown]
  - Pain [Unknown]
  - Memory impairment [Unknown]
  - Hypotonia [Unknown]
  - Nausea [Unknown]
  - Drug withdrawal syndrome [Unknown]
  - Chest pain [Unknown]
